FAERS Safety Report 5832163-5 (Version None)
Quarter: 2008Q3

REPORT INFORMATION
  Report Type: 
  Country: None (occurrence: None)
  Receive Date: 20080731
  Receipt Date: 20080731
  Transmission Date: 20090109
  Serious: No
  Sender: FDA-Public Use
  Company Number: None

PATIENT
  Sex: Male

DRUGS (1)
  1. AVONEX [Suspect]
     Indication: MULTIPLE SCLEROSIS
     Dosage: 30MCG I.M. WEEKLY WEEKLY IM
     Route: 030

REACTIONS (7)
  - ARTHRALGIA [None]
  - CHILLS [None]
  - HEADACHE [None]
  - MULTIPLE SCLEROSIS [None]
  - MUSCLE SPASMS [None]
  - MUSCLE TIGHTNESS [None]
  - NAUSEA [None]
